FAERS Safety Report 14986885 (Version 1)
Quarter: 2018Q2

REPORT INFORMATION
  Report Type: Spontaneous
  Country: BR (occurrence: BR)
  Receive Date: 20180608
  Receipt Date: 20180608
  Transmission Date: 20180711
  Serious: Yes (Death, Hospitalization, Other)
  Sender: FDA-Public Use
  Company Number: BR-SUN PHARMACEUTICAL INDUSTRIES LTD-2018RR-170554

PATIENT
  Age: 22 Year
  Sex: Female

DRUGS (9)
  1. FOLIC ACID. [Suspect]
     Active Substance: FOLIC ACID
     Indication: HYPEREMESIS GRAVIDARUM
     Dosage: 5 MG, DAILY
     Route: 065
  2. DANTROLENE. [Suspect]
     Active Substance: DANTROLENE SODIUM
     Indication: NEUROLEPTIC MALIGNANT SYNDROME
  3. VITAMIN B6 [Suspect]
     Active Substance: PYRIDOXINE HYDROCHLORIDE
     Indication: HYPEREMESIS GRAVIDARUM
     Dosage: UNK
     Route: 065
  4. BROMOCRIPTINE [Suspect]
     Active Substance: BROMOCRIPTINE
     Indication: NEUROLEPTIC MALIGNANT SYNDROME
  5. BROMOCRIPTINE [Suspect]
     Active Substance: BROMOCRIPTINE
     Indication: INFECTION
     Route: 065
  6. DANTROLENE. [Suspect]
     Active Substance: DANTROLENE SODIUM
     Indication: INFECTION
     Dosage: UNK
     Route: 065
  7. METOCLOPRAMIDE. [Suspect]
     Active Substance: METOCLOPRAMIDE
     Indication: HYPEREMESIS GRAVIDARUM
     Dosage: 10 MG, TID
     Route: 065
  8. DIMENHYDRINATE. [Suspect]
     Active Substance: DIMENHYDRINATE
     Indication: HYPEREMESIS GRAVIDARUM
     Dosage: UNK
     Route: 065
  9. CEFTRIAXONE. [Suspect]
     Active Substance: CEFTRIAXONE
     Indication: INFECTION
     Dosage: UNK
     Route: 065

REACTIONS (3)
  - Exposure during pregnancy [Unknown]
  - Neuroleptic malignant syndrome [Fatal]
  - Foetal death [Unknown]
